FAERS Safety Report 21886330 (Version 4)
Quarter: 2023Q4

REPORT INFORMATION
  Report Type: Spontaneous
  Country: US (occurrence: US)
  Receive Date: 20230119
  Receipt Date: 20231019
  Transmission Date: 20240110
  Serious: Yes (Hospitalization, Other)
  Sender: FDA-Public Use
  Company Number: US-SEATTLE GENETICS-2023SGN00488

PATIENT
  Sex: Female

DRUGS (1)
  1. TIVDAK [Suspect]
     Active Substance: TISOTUMAB VEDOTIN-TFTV
     Indication: Cervix carcinoma recurrent
     Dosage: UNK
     Route: 065

REACTIONS (17)
  - Ulcerative keratitis [Unknown]
  - Conjunctival disorder [Recovered/Resolved]
  - Hospitalisation [Unknown]
  - Recurrent cancer [Unknown]
  - Visual impairment [Recovered/Resolved]
  - Visual acuity reduced [Unknown]
  - Eye pain [Recovered/Resolved]
  - Vision blurred [Unknown]
  - Neurologic neglect syndrome [Unknown]
  - Eye infection bacterial [Unknown]
  - Eye oedema [Unknown]
  - Visual impairment [Recovering/Resolving]
  - Eye disorder [Unknown]
  - Bladder neoplasm [Unknown]
  - Haematuria [Unknown]
  - Keratitis [Unknown]
  - Dry eye [Unknown]

NARRATIVE: CASE EVENT DATE: 20230801
